FAERS Safety Report 13024880 (Version 2)
Quarter: 2017Q1

REPORT INFORMATION
  Report Type: Spontaneous
  Country: GB (occurrence: GB)
  Receive Date: 20161213
  Receipt Date: 20170118
  Transmission Date: 20170428
  Serious: Yes (Hospitalization, Other)
  Sender: FDA-Public Use
  Company Number: GB-BAUSCH-BL-2016-030900

PATIENT
  Age: 79 Year
  Sex: Female
  Weight: 76 kg

DRUGS (34)
  1. VELCADE [Suspect]
     Active Substance: BORTEZOMIB
     Indication: PLASMA CELL MYELOMA
     Route: 058
     Dates: start: 20151201, end: 20160301
  2. ALLOPURINOL. [Concomitant]
     Active Substance: ALLOPURINOL
     Indication: GOUT
     Route: 048
     Dates: start: 20151201
  3. LACTULOSE. [Concomitant]
     Active Substance: LACTULOSE
     Indication: CONSTIPATION
     Route: 048
     Dates: start: 20150225
  4. PARACETAMOL [Concomitant]
     Active Substance: ACETAMINOPHEN
     Indication: ARTHRALGIA
     Dosage: 1AS NECESSARY
     Route: 048
     Dates: start: 20160101
  5. DARATUMUMAB [Suspect]
     Active Substance: DARATUMUMAB
     Indication: PLASMA CELL MYELOMA
     Route: 042
     Dates: start: 20151201, end: 20151229
  6. AMLODIPINE [Concomitant]
     Active Substance: AMLODIPINE BESYLATE
     Indication: HYPERTENSION
     Route: 048
  7. LANSOPRAZOLE. [Concomitant]
     Active Substance: LANSOPRAZOLE
     Indication: PROPHYLAXIS AGAINST GASTROINTESTINAL ULCER
     Route: 048
     Dates: start: 2005
  8. PARACETAMOL [Concomitant]
     Active Substance: ACETAMINOPHEN
     Indication: SEPSIS
     Route: 048
     Dates: start: 2005, end: 20160101
  9. TAZOCIN [Concomitant]
     Active Substance: PIPERACILLIN SODIUM\TAZOBACTAM SODIUM
     Route: 042
     Dates: start: 20160308, end: 20160315
  10. DARATUMUMAB [Suspect]
     Active Substance: DARATUMUMAB
     Route: 042
  11. PERINDOPRIL [Concomitant]
     Active Substance: PERINDOPRIL
     Indication: HYPERTENSION
     Route: 048
     Dates: end: 20160108
  12. SEPTRIN [Concomitant]
     Active Substance: SULFAMETHOXAZOLE\TRIMETHOPRIM
     Indication: INFECTION PROPHYLAXIS
     Route: 048
     Dates: start: 201602
  13. DEXAMETHASONE. [Suspect]
     Active Substance: DEXAMETHASONE
     Indication: PLASMA CELL MYELOMA
     Route: 048
     Dates: start: 20151201, end: 20151201
  14. BENDROFLUMETHIAZIDE [Concomitant]
     Active Substance: BENDROFLUMETHIAZIDE
     Indication: HYPERTENSION
     Route: 048
     Dates: start: 201512
  15. DALTEPARIN [Concomitant]
     Active Substance: DALTEPARIN
     Route: 058
     Dates: start: 20160308, end: 20160315
  16. DIHYDROCODEINE [Concomitant]
     Active Substance: DIHYDROCODEINE
     Indication: ARTHRALGIA
     Route: 048
     Dates: start: 20150225
  17. FUROSEMIDE. [Concomitant]
     Active Substance: FUROSEMIDE
     Indication: OEDEMA PERIPHERAL
     Route: 048
     Dates: start: 20160202
  18. TAZOCIN [Concomitant]
     Active Substance: PIPERACILLIN SODIUM\TAZOBACTAM SODIUM
     Route: 042
     Dates: start: 20160316, end: 20160316
  19. VELCADE [Suspect]
     Active Substance: BORTEZOMIB
     Route: 058
     Dates: start: 20160405, end: 20161129
  20. MELPHALAN [Suspect]
     Active Substance: MELPHALAN
     Indication: PLASMA CELL MYELOMA
     Route: 048
     Dates: start: 20151201, end: 20151204
  21. MELPHALAN [Suspect]
     Active Substance: MELPHALAN
     Route: 048
     Dates: start: 20160223, end: 20160226
  22. PREDNISONE. [Suspect]
     Active Substance: PREDNISONE
     Indication: PLASMA CELL MYELOMA
     Route: 048
     Dates: start: 20151202, end: 20151204
  23. PREDNISONE. [Suspect]
     Active Substance: PREDNISONE
     Route: 048
     Dates: start: 20160114, end: 20160116
  24. PREDNISONE. [Suspect]
     Active Substance: PREDNISONE
     Route: 048
     Dates: start: 20160224, end: 20160226
  25. CO-AMOXICLAV [Concomitant]
     Active Substance: AMOXICILLIN\CLAVULANIC ACID
     Indication: INFECTION PROPHYLAXIS
     Route: 048
     Dates: start: 20151228, end: 20151231
  26. DOXAZOSIN [Concomitant]
     Active Substance: DOXAZOSIN\DOXAZOSIN MESYLATE
     Indication: HYPERTENSION
     Route: 048
  27. FERROUS FUMARATE [Concomitant]
     Active Substance: FERROUS FUMARATE
     Indication: IRON DEFICIENCY
     Route: 048
     Dates: start: 2010
  28. CO-DYDRAMOL [Concomitant]
     Active Substance: ACETAMINOPHEN\DIHYDROCODEINE
     Indication: ARTHRALGIA
     Route: 048
     Dates: start: 2015
  29. DALTEPARIN [Concomitant]
     Active Substance: DALTEPARIN
     Indication: THROMBOSIS PROPHYLAXIS
     Route: 058
     Dates: start: 20160101, end: 20160104
  30. PARACETAMOL [Concomitant]
     Active Substance: ACETAMINOPHEN
     Indication: PNEUMONIA
     Route: 042
     Dates: start: 20160307, end: 20160307
  31. MELPHALAN [Suspect]
     Active Substance: MELPHALAN
     Route: 048
     Dates: start: 20160113, end: 20160116
  32. ACICLOVIR [Concomitant]
     Active Substance: ACYCLOVIR
     Indication: ANTIVIRAL PROPHYLAXIS
     Route: 048
     Dates: start: 20151201
  33. SODIUM CHLORIDE. [Concomitant]
     Active Substance: SODIUM CHLORIDE
     Indication: SEPSIS
     Route: 042
     Dates: start: 20160308, end: 20160308
  34. TAZOCIN [Concomitant]
     Active Substance: PIPERACILLIN SODIUM\TAZOBACTAM SODIUM
     Indication: SEPSIS
     Route: 042
     Dates: start: 20160307, end: 20160307

REACTIONS (7)
  - Eye pruritus [Unknown]
  - Oedema peripheral [Unknown]
  - Pneumonia [Unknown]
  - Acute kidney injury [Recovered/Resolved]
  - Anaemia [Recovered/Resolved]
  - Arthralgia [Unknown]
  - Sepsis [Unknown]

NARRATIVE: CASE EVENT DATE: 20151201
